FAERS Safety Report 6696163-8 (Version None)
Quarter: 2010Q2

REPORT INFORMATION
  Report Type: 
  Country: None (occurrence: None)
  Receive Date: 20100422
  Receipt Date: 20100414
  Transmission Date: 20101027
  Serious: Yes (Death)
  Sender: FDA-Public Use
  Company Number: A-CH2010-35718

PATIENT
  Age: 50 Year
  Sex: Female

DRUGS (1)
  1. TRACLEER [Suspect]
     Indication: DRUG USE FOR UNKNOWN INDICATION
     Dosage: 62.5 MG, ORAL
     Route: 048
     Dates: start: 20100309

REACTIONS (1)
  - DEATH [None]
